FAERS Safety Report 24827159 (Version 1)
Quarter: 2025Q1

REPORT INFORMATION
  Report Type: Spontaneous
  Country: US (occurrence: US)
  Receive Date: 20250109
  Receipt Date: 20250109
  Transmission Date: 20250409
  Serious: No
  Sender: SANOFI AVENTIS
  Company Number: US-SA-2025SA007527

PATIENT
  Sex: Female
  Weight: 86.18 kg

DRUGS (28)
  1. DUPIXENT [Suspect]
     Active Substance: DUPILUMAB
     Dosage: 300 MG, QOW
     Route: 065
  2. AMBRISENTAN [Concomitant]
     Active Substance: AMBRISENTAN
  3. YUPELRI [Concomitant]
     Active Substance: REVEFENACIN
  4. FARXIGA [Concomitant]
     Active Substance: DAPAGLIFLOZIN PROPANEDIOL
  5. FAMOTIDINE [Concomitant]
     Active Substance: FAMOTIDINE
  6. VITAMIN D3 [Concomitant]
     Active Substance: CHOLECALCIFEROL
  7. ASPIRIN [Concomitant]
     Active Substance: ASPIRIN
  8. FLUTICASONE PROPIONATE [Concomitant]
     Active Substance: FLUTICASONE PROPIONATE
  9. ZYRTEC [Concomitant]
     Active Substance: CETIRIZINE HYDROCHLORIDE
  10. PULMICORT TURBUHALER [Concomitant]
     Active Substance: BUDESONIDE
  11. FORMOTEROL FUMARATE [Concomitant]
     Active Substance: FORMOTEROL FUMARATE
  12. GEMTESA [Concomitant]
     Active Substance: VIBEGRON
  13. ALLOPURINOL [Concomitant]
     Active Substance: ALLOPURINOL
  14. FUROSEMIDE [Concomitant]
     Active Substance: FUROSEMIDE
  15. COLCHICINE [Concomitant]
     Active Substance: COLCHICINE
  16. COLESTIPOL HYDROCHLORIDE [Concomitant]
     Active Substance: COLESTIPOL HYDROCHLORIDE
  17. ATORVASTATIN CALCIUM [Concomitant]
     Active Substance: ATORVASTATIN CALCIUM
  18. AMLODIPINE BESYLATE [Concomitant]
     Active Substance: AMLODIPINE BESYLATE
  19. INCRUSE ELLIPTA [Concomitant]
     Active Substance: UMECLIDINIUM BROMIDE
  20. TRAMADOL HCL ER [Concomitant]
  21. OMEPRAZOLE [Concomitant]
     Active Substance: OMEPRAZOLE
  22. STIOLTO RESPIMAT [Concomitant]
     Active Substance: OLODATEROL HYDROCHLORIDE\TIOTROPIUM BROMIDE MONOHYDRATE
  23. MELOXICAM [Concomitant]
     Active Substance: MELOXICAM
  24. LOVASTATIN [Concomitant]
     Active Substance: LOVASTATIN
  25. LOSARTAN POTASSIUM [Concomitant]
     Active Substance: LOSARTAN POTASSIUM
  26. HYDROCORTISONE [Concomitant]
     Active Substance: HYDROCORTISONE
  27. ALBUTEROL SULFATE [Concomitant]
     Active Substance: ALBUTEROL SULFATE
  28. OXYGEN [Concomitant]
     Active Substance: OXYGEN

REACTIONS (1)
  - Therapeutic response unexpected [Unknown]
